FAERS Safety Report 20074027 (Version 1)
Quarter: 2021Q4

REPORT INFORMATION
  Report Type: Spontaneous
  Country: US (occurrence: None)
  Receive Date: 20211115
  Receipt Date: 20211115
  Transmission Date: 20220303
  Serious: Yes (Life-Threatening, Hospitalization)
  Sender: FDA-Public Use
  Company Number: None

PATIENT
  Age: 67 Year
  Sex: Male
  Weight: 105 kg

DRUGS (1)
  1. REGEN-COV [Suspect]
     Active Substance: CASIRIVIMAB\IMDEVIMAB
     Indication: SARS-CoV-2 test positive
     Dosage: FREQUENCY : ONCE;?
     Route: 042
     Dates: start: 20211115, end: 20211115

REACTIONS (6)
  - Tremor [None]
  - Infusion related reaction [None]
  - Tachycardia [None]
  - Tachypnoea [None]
  - Chest pain [None]
  - Acute myocardial infarction [None]

NARRATIVE: CASE EVENT DATE: 20211115
